FAERS Safety Report 17156664 (Version 1)
Quarter: 2019Q4

REPORT INFORMATION
  Report Type: Spontaneous
  Country: US (occurrence: US)
  Receive Date: 20191216
  Receipt Date: 20191216
  Transmission Date: 20200122
  Serious: No
  Sender: FDA-Public Use
  Company Number: NVSC2019US067965

PATIENT
  Age: 72 Year
  Sex: Female
  Weight: 51.16 kg

DRUGS (1)
  1. CLOFAZIMINE [Suspect]
     Active Substance: CLOFAZIMINE
     Indication: MYCOBACTERIUM AVIUM COMPLEX INFECTION
     Dosage: 100 MG, QW3
     Route: 048
     Dates: start: 20181018

REACTIONS (1)
  - Skin sensitisation [Unknown]

NARRATIVE: CASE EVENT DATE: 20191120
